FAERS Safety Report 8847579 (Version 1)
Quarter: 2012Q4

REPORT INFORMATION
  Report Type: 
  Country: TW (occurrence: TW)
  Receive Date: 20121018
  Receipt Date: 20121018
  Transmission Date: 20130627
  Serious: Yes (Other)
  Sender: FDA-Public Use
  Company Number: TW-WATSON-2012-13334

PATIENT
  Age: 72 Year
  Sex: Female

DRUGS (4)
  1. SODIUM VALPROATE (UNKNOWN) [Suspect]
     Indication: BIPOLAR I DISORDER
     Dosage: 900 mg, daily
     Route: 065
  2. LAMOTRIGINE (UNKNOWN) [Suspect]
     Indication: DEPRESSION
     Dosage: 75 mg, daily
     Route: 065
  3. LAMOTRIGINE (UNKNOWN) [Suspect]
     Dosage: 12.5 mg, daily with increase of 12.5mg every 3 days
     Route: 065
  4. CLOZAPINE [Concomitant]
     Indication: BIPOLAR I DISORDER
     Dosage: 125 mg, daily
     Route: 065

REACTIONS (2)
  - Hyperammonaemic encephalopathy [Recovered/Resolved]
  - Potentiating drug interaction [Not Recovered/Not Resolved]
